FAERS Safety Report 10870201 (Version 2)
Quarter: 2015Q1

REPORT INFORMATION
  Report Type: Spontaneous
  Country: US (occurrence: US)
  Receive Date: 20150226
  Receipt Date: 20150320
  Transmission Date: 20150721
  Serious: Yes (Other)
  Sender: FDA-Public Use
  Company Number: US-SHIRE-US201501568

PATIENT
  Sex: Male
  Weight: 122.45 kg

DRUGS (15)
  1. FIRAZYR [Suspect]
     Active Substance: ICATIBANT ACETATE
     Indication: HEREDITARY ANGIOEDEMA
     Dosage: 30 MG, AS REQ^D
     Route: 058
     Dates: end: 20150227
  2. ATENOLOL. [Concomitant]
     Active Substance: ATENOLOL
     Indication: HYPERTENSION
     Dosage: 25 MG, 1X/DAY:QD
     Route: 048
     Dates: start: 20121012
  3. BERINERT [Concomitant]
     Active Substance: HUMAN C1-ESTERASE INHIBITOR
     Indication: HEREDITARY ANGIOEDEMA
     Dosage: 2500 IU, AS REQ^D
     Route: 042
     Dates: start: 20140718
  4. CINRYZE [Concomitant]
     Active Substance: HUMAN C1-ESTERASE INHIBITOR
     Indication: PROPHYLAXIS
  5. PROTOPIC [Concomitant]
     Active Substance: TACROLIMUS
     Indication: PRODUCT USED FOR UNKNOWN INDICATION
     Dosage: 0.1 %, AS REQ^D
     Route: 065
  6. OMEPRAZOLE. [Concomitant]
     Active Substance: OMEPRAZOLE
     Indication: GASTROOESOPHAGEAL REFLUX DISEASE
     Dosage: UNK, 1X/DAY:QD
     Route: 048
     Dates: start: 20140804
  7. FLONASE                            /00908302/ [Concomitant]
     Indication: RHINITIS
     Dosage: UNK UNK, UNKNOWN
     Route: 065
     Dates: start: 20140805
  8. FLUTICASONE [Concomitant]
     Active Substance: FLUTICASONE\FLUTICASONE PROPIONATE
     Indication: RHINITIS
     Dosage: 50 ML, 2X/DAY:BID
     Route: 045
     Dates: start: 20140805
  9. AZELASTINE [Concomitant]
     Active Substance: AZELASTINE
     Indication: RHINITIS
     Dosage: 1 DF, 2X/DAY:BID
     Route: 045
     Dates: start: 20140718
  10. LEXAPRO [Concomitant]
     Active Substance: ESCITALOPRAM OXALATE
     Indication: ANXIETY
     Dosage: 10 MG, 1X/DAY:QD
     Route: 048
     Dates: start: 20121012
  11. CINRYZE [Concomitant]
     Active Substance: HUMAN C1-ESTERASE INHIBITOR
     Indication: HEREDITARY ANGIOEDEMA
     Dosage: 1500 UNITS, OTHER (EVERY 3-4 DAYS)
     Route: 042
  12. DESLORATADINE. [Concomitant]
     Active Substance: DESLORATADINE
     Indication: RHINITIS
     Dosage: 5 MG, 1X/DAY:QD
     Route: 048
     Dates: start: 20140804
  13. LEXAPRO [Concomitant]
     Active Substance: ESCITALOPRAM OXALATE
     Indication: DEPRESSION
  14. AFRIN [Concomitant]
     Active Substance: OXYMETAZOLINE
     Indication: RHINITIS
     Dosage: 1 DF, 2X/DAY:BID
     Route: 045
  15. CHLORPHENIRAMINE                   /00072501/ [Concomitant]
     Active Substance: CHLORPHENIRAMINE
     Indication: RHINITIS
     Dosage: 4 MG, 1X/DAY:QD (BEFORE SLEEP)
     Dates: start: 20140805

REACTIONS (1)
  - Drug ineffective [Recovered/Resolved]
